FAERS Safety Report 7220434-X (Version None)
Quarter: 2011Q1

REPORT INFORMATION
  Report Type: 
  Country: None (occurrence: None)
  Receive Date: 20110111
  Receipt Date: 20101231
  Transmission Date: 20110831
  Serious: Yes (Hospitalization)
  Sender: FDA-Public Use
  Company Number: BE-BAXTER-2011BH000339

PATIENT
  Age: 61 Year
  Sex: Female

DRUGS (3)
  1. TRASTUZUMAB [Concomitant]
     Indication: BREAST CANCER
     Route: 042
     Dates: start: 20100412
  2. CYCLOPHOSPHAMIDE [Suspect]
     Indication: BREAST CANCER
     Route: 042
     Dates: start: 20100412, end: 20100502
  3. TAXOTERE [Suspect]
     Indication: BREAST CANCER
     Route: 042
     Dates: start: 20100412, end: 20100503

REACTIONS (4)
  - LUNG INFILTRATION [None]
  - FEBRILE NEUTROPENIA [None]
  - GENERALISED OEDEMA [None]
  - DIARRHOEA [None]
